FAERS Safety Report 8538407-3 (Version None)
Quarter: 2012Q3

REPORT INFORMATION
  Report Type: 
  Country: None (occurrence: None)
  Receive Date: 20120726
  Receipt Date: 20120706
  Transmission Date: 20120928
  Serious: No
  Sender: FDA-Public Use
  Company Number: US-PFIZER INC-2012177548

PATIENT
  Sex: Female
  Weight: 56.689 kg

DRUGS (3)
  1. PROTONIX [Suspect]
     Dosage: 40 MG, 2X/DAY
     Dates: start: 20120601
  2. METOPROLOL [Concomitant]
     Dosage: UNK
  3. PROTONIX [Suspect]
     Indication: GASTROOESOPHAGEAL REFLUX DISEASE
     Dosage: 40 MG, 2X/DAY
     Route: 048
     Dates: start: 20080101, end: 20120501

REACTIONS (1)
  - BLOOD CHOLESTEROL INCREASED [None]
